FAERS Safety Report 7885973-7 (Version None)
Quarter: 2011Q4

REPORT INFORMATION
  Report Type: 
  Country: None (occurrence: None)
  Receive Date: 20111102
  Receipt Date: 20110705
  Transmission Date: 20120403
  Serious: No
  Sender: FDA-Public Use
  Company Number: US-AMGEN-USASP2011034147

PATIENT
  Age: 28 Year
  Sex: Female
  Weight: 87.528 kg

DRUGS (6)
  1. ALBUTEROL [Concomitant]
  2. ALEVE [Concomitant]
     Dosage: 220 MG, UNK
     Route: 048
  3. PROAIR HFA [Concomitant]
  4. PREDNISONE [Concomitant]
     Dosage: 1 MG, UNK
     Route: 048
  5. ENBREL [Suspect]
     Indication: PRODUCT USED FOR UNKNOWN INDICATION
     Dosage: 50 MG, QWK
     Route: 058
  6. PERCOCET [Concomitant]

REACTIONS (2)
  - STEATORRHOEA [None]
  - FAECES DISCOLOURED [None]
